FAERS Safety Report 5170032-7 (Version None)
Quarter: 2006Q4

REPORT INFORMATION
  Report Type: 
  Country: None (occurrence: None)
  Receive Date: 20061212
  Receipt Date: 20061204
  Transmission Date: 20070319
  Serious: Yes (Hospitalization, Other)
  Sender: FDA-Public Use
  Company Number: DE-ELI_LILLY_AND_COMPANY-DE200612000716

PATIENT
  Age: 70 Year
  Sex: Female

DRUGS (2)
  1. XIGRIS [Suspect]
     Indication: TOXIC SHOCK SYNDROME STREPTOCOCCAL
     Route: 042
  2. HEPARIN [Concomitant]

REACTIONS (3)
  - BRAIN STEM HAEMORRHAGE [None]
  - COAGULOPATHY [None]
  - PLATELET COUNT DECREASED [None]
